FAERS Safety Report 25361775 (Version 1)
Quarter: 2025Q2

REPORT INFORMATION
  Report Type: Spontaneous
  Country: US (occurrence: US)
  Receive Date: 20250527
  Receipt Date: 20250527
  Transmission Date: 20250716
  Serious: No
  Sender: TEVA
  Company Number: US-TEVA-VS-3333200

PATIENT
  Age: 78 Year
  Sex: Female
  Weight: 60.781 kg

DRUGS (1)
  1. QVAR REDIHALER [Suspect]
     Active Substance: BECLOMETHASONE DIPROPIONATE
     Indication: Asthma
     Dosage: 80MCG/DOSE, INHALATION AEROSOL
     Route: 048

REACTIONS (3)
  - Throat irritation [Unknown]
  - Expired product administered [Unknown]
  - Wrong technique in device usage process [Unknown]
